FAERS Safety Report 6167083-2 (Version None)
Quarter: 2009Q2

REPORT INFORMATION
  Report Type: 
  Country: None (occurrence: None)
  Receive Date: 20090424
  Receipt Date: 20090414
  Transmission Date: 20091009
  Serious: Yes (Other)
  Sender: FDA-Public Use
  Company Number: JP-PFIZER INC-2009200560

PATIENT

DRUGS (2)
  1. ZOLOFT [Suspect]
     Dosage: 50 MG, UNK
     Route: 048
     Dates: start: 20090202, end: 20090404
  2. ABILIFY [Suspect]
     Indication: SOCIAL AVOIDANT BEHAVIOUR
     Dosage: 9 MG, UNK
     Route: 048
     Dates: start: 20080101, end: 20090404

REACTIONS (2)
  - CONVULSION [None]
  - LOSS OF CONSCIOUSNESS [None]
